FAERS Safety Report 11136047 (Version 1)
Quarter: 2015Q2

REPORT INFORMATION
  Report Type: Spontaneous
  Country: US (occurrence: US)
  Receive Date: 20150526
  Receipt Date: 20150526
  Transmission Date: 20150821
  Serious: No
  Sender: FDA-Public Use
  Company Number: US-ELI_LILLY_AND_COMPANY-US201504009763

PATIENT
  Age: 13 Year
  Sex: Male

DRUGS (2)
  1. HUMATROPE [Suspect]
     Active Substance: SOMATROPIN
     Dosage: 0.8 MG, OTHER
     Route: 065
     Dates: start: 20150420
  2. HUMATROPE [Suspect]
     Active Substance: SOMATROPIN
     Dosage: 3.2 MG, SINGLE
     Route: 065
     Dates: start: 20150422

REACTIONS (1)
  - Accidental overdose [Recovered/Resolved]

NARRATIVE: CASE EVENT DATE: 20150422
